FAERS Safety Report 14092349 (Version 2)
Quarter: 2017Q4

REPORT INFORMATION
  Report Type: Spontaneous
  Country: US (occurrence: US)
  Receive Date: 20171016
  Receipt Date: 20171205
  Transmission Date: 20180321
  Serious: No
  Sender: FDA-Public Use
  Company Number: US-ASTRAZENECA-2017SF03910

PATIENT
  Age: 697 Month
  Sex: Male
  Weight: 86.2 kg

DRUGS (1)
  1. BYDUREON [Suspect]
     Active Substance: EXENATIDE
     Indication: TYPE 2 DIABETES MELLITUS
     Route: 065
     Dates: start: 201604

REACTIONS (4)
  - Wrong technique in device usage process [Unknown]
  - Device malfunction [Unknown]
  - Injection site pain [Not Recovered/Not Resolved]
  - Injection site hyperaesthesia [Not Recovered/Not Resolved]

NARRATIVE: CASE EVENT DATE: 201604
